FAERS Safety Report 14874573 (Version 6)
Quarter: 2018Q3

REPORT INFORMATION
  Report Type: Spontaneous
  Country: US (occurrence: US)
  Receive Date: 20180510
  Receipt Date: 20180927
  Transmission Date: 20181010
  Serious: Yes (Other)
  Sender: FDA-Public Use
  Company Number: US-NAPPMUNDI-USA-2018-0143521

PATIENT
  Age: 52 Year
  Sex: Male

DRUGS (6)
  1. ATIVAN [Concomitant]
     Active Substance: LORAZEPAM
     Indication: PRODUCT USED FOR UNKNOWN INDICATION
     Route: 048
  2. ALCOHOL. [Suspect]
     Active Substance: ALCOHOL
     Indication: PRODUCT USED FOR UNKNOWN INDICATION
     Route: 048
  3. BUTRANS [Suspect]
     Active Substance: BUPRENORPHINE
     Indication: ABDOMINAL PAIN
     Dosage: 20 MCG/HR, WEEKLY
     Route: 062
     Dates: start: 2013
  4. PERCOCET                           /00446701/ [Concomitant]
     Active Substance: ACETAMINOPHEN\OXYCODONE HYDROCHLORIDE\OXYCODONE TEREPHTHALATE
     Indication: ABDOMINAL PAIN
     Route: 048
  5. CARAFATE [Concomitant]
     Active Substance: SUCRALFATE
     Indication: PRODUCT USED FOR UNKNOWN INDICATION
     Route: 048
  6. BUTRANS [Suspect]
     Active Substance: BUPRENORPHINE
     Indication: PAIN

REACTIONS (36)
  - Tooth extraction [Unknown]
  - Stress [Unknown]
  - Pain [Not Recovered/Not Resolved]
  - Feeling abnormal [Unknown]
  - Dizziness [Unknown]
  - Hyperhidrosis [Unknown]
  - Abdominal pain upper [Unknown]
  - Palpitations [Unknown]
  - Dysarthria [Unknown]
  - Panic attack [Not Recovered/Not Resolved]
  - Nervous system disorder [Unknown]
  - Ear pain [Not Recovered/Not Resolved]
  - Nausea [Unknown]
  - Application site pain [Unknown]
  - Wrong technique in product usage process [Unknown]
  - Headache [Not Recovered/Not Resolved]
  - Inappropriate schedule of drug administration [Unknown]
  - Hernia [Unknown]
  - Anxiety [Unknown]
  - Application site irritation [Unknown]
  - Transient ischaemic attack [Unknown]
  - Lyme disease [Unknown]
  - Drug withdrawal syndrome [Unknown]
  - Drug dose omission [Recovered/Resolved]
  - Musculoskeletal stiffness [Not Recovered/Not Resolved]
  - Asthenia [Unknown]
  - Hypoaesthesia [Not Recovered/Not Resolved]
  - Application site discomfort [Unknown]
  - Unevaluable event [Not Recovered/Not Resolved]
  - Substance abuse [Not Recovered/Not Resolved]
  - Gingivitis [Unknown]
  - Malaise [Not Recovered/Not Resolved]
  - Choking sensation [Unknown]
  - Synovial cyst [Unknown]
  - Inadequate analgesia [Unknown]
  - Heart rate increased [Not Recovered/Not Resolved]

NARRATIVE: CASE EVENT DATE: 201705
